FAERS Safety Report 16561969 (Version 3)
Quarter: 2020Q4

REPORT INFORMATION
  Report Type: Spontaneous
  Country: JP (occurrence: JP)
  Receive Date: 20190711
  Receipt Date: 20201023
  Transmission Date: 20210113
  Serious: Yes (Hospitalization, Other)
  Sender: FDA-Public Use
  Company Number: JP-BRISTOL-MYERS SQUIBB COMPANY-BMS-2019-062371

PATIENT
  Age: 62 Year
  Sex: Male

DRUGS (3)
  1. OPDIVO [Suspect]
     Active Substance: NIVOLUMAB
     Dosage: UNK
     Dates: start: 2018
  2. PREDNISOLONE. [Concomitant]
     Active Substance: PREDNISOLONE
     Indication: PRODUCT USED FOR UNKNOWN INDICATION
     Dosage: 10 MILLIGRAM, QWK
     Route: 065
  3. OPDIVO [Suspect]
     Active Substance: NIVOLUMAB
     Indication: NON-SMALL CELL LUNG CANCER RECURRENT
     Dosage: UNK, Q2WK
     Route: 041
     Dates: start: 201705, end: 201807

REACTIONS (4)
  - Hypothyroidism [Recovering/Resolving]
  - Cardiac failure [Unknown]
  - Atrioventricular block complete [Unknown]
  - Immune-mediated myocarditis [Recovering/Resolving]

NARRATIVE: CASE EVENT DATE: 201711
